FAERS Safety Report 10244349 (Version 1)
Quarter: 2014Q2

REPORT INFORMATION
  Report Type: Spontaneous
  Country: CA (occurrence: CA)
  Receive Date: 20140618
  Receipt Date: 20140618
  Transmission Date: 20141212
  Serious: Yes (Other)
  Sender: FDA-Public Use
  Company Number: CA-B.I. PHARMACEUTICALS,INC./RIDGEFIELD-2014-BI-26913CN

PATIENT
  Age: 57 Year
  Sex: Female
  Weight: 80 kg

DRUGS (4)
  1. MICARDIS [Suspect]
     Indication: PRODUCT USED FOR UNKNOWN INDICATION
     Dosage: 1 ANZ
     Route: 048
  2. EVISTA [Concomitant]
     Route: 065
  3. LIPITOR [Concomitant]
     Route: 065
  4. NOVO-HYDRAZIDE [Concomitant]
     Route: 065

REACTIONS (2)
  - Chromaturia [Recovered/Resolved]
  - Myalgia [Recovered/Resolved]
